FAERS Safety Report 4293085-7 (Version None)
Quarter: 2004Q1

REPORT INFORMATION
  Report Type: 
  Country: None (occurrence: None)
  Receive Date: 20040212
  Receipt Date: 20020930
  Transmission Date: 20041129
  Serious: No
  Sender: FDA-Public Use
  Company Number: US-GLAXOSMITHKLINE-A0381990A

PATIENT
  Age: 44 Year
  Sex: Female

DRUGS (1)
  1. PAXIL [Suspect]
     Indication: ANXIETY
     Route: 048
     Dates: start: 20010101

REACTIONS (4)
  - ANORGASMIA [None]
  - DIZZINESS [None]
  - LIBIDO DECREASED [None]
  - NAUSEA [None]
